FAERS Safety Report 16204416 (Version 1)
Quarter: 2019Q2

REPORT INFORMATION
  Report Type: Report from Study
  Country: GB (occurrence: GB)
  Receive Date: 20190416
  Receipt Date: 20190416
  Transmission Date: 20190711
  Serious: Yes (Hospitalization)
  Sender: FDA-Public Use
  Company Number: GB-MYLANLABS-2019M1017087

PATIENT
  Sex: Female

DRUGS (1)
  1. BRABIO 40 MG/ML SOLUTION FOR INJECTION, PRE-FILLED-SYRINGE [Suspect]
     Active Substance: GLATIRAMER ACETATE
     Indication: MULTIPLE SCLEROSIS
     Dosage: 40 MILLIGRAM, 3XW
     Route: 058
     Dates: start: 20181224

REACTIONS (10)
  - Chest pain [Recovered/Resolved]
  - Chills [Recovered/Resolved]
  - Muscular weakness [Unknown]
  - Injection site haemorrhage [Unknown]
  - Palpitations [Recovered/Resolved]
  - Injection site mass [Unknown]
  - Swelling face [Unknown]
  - Dyspnoea [Unknown]
  - Gait disturbance [Unknown]
  - Injection site discolouration [Unknown]
